FAERS Safety Report 6742615-1 (Version None)
Quarter: 2010Q2

REPORT INFORMATION
  Report Type: 
  Country: None (occurrence: None)
  Receive Date: 20100524
  Receipt Date: 20100407
  Transmission Date: 20101027
  Serious: No
  Sender: FDA-Public Use
  Company Number: ACO_00679_2010

PATIENT
  Sex: Male
  Weight: 83.9154 kg

DRUGS (4)
  1. AMPYRA [Suspect]
     Indication: MULTIPLE SCLEROSIS
     Dosage: (10 MG BID ORAL)
     Route: 048
     Dates: start: 20100401, end: 20100406
  2. BACLOFEN [Concomitant]
  3. COPAXONE [Concomitant]
  4. CYMBALTA [Concomitant]

REACTIONS (5)
  - COUGH [None]
  - HEADACHE [None]
  - LACRIMATION INCREASED [None]
  - NASAL CONGESTION [None]
  - NAUSEA [None]
